FAERS Safety Report 5355240-4 (Version None)
Quarter: 2007Q2

REPORT INFORMATION
  Report Type: 
  Country: None (occurrence: None)
  Receive Date: 20070601
  Receipt Date: 20070529
  Transmission Date: 20071010
  Serious: Yes (Other)
  Sender: FDA-Public Use
  Company Number: THYM-11337

PATIENT
  Age: 39 Year
  Sex: Female

DRUGS (6)
  1. THYMOGLOBULIN [Suspect]
     Indication: KIDNEY TRANSPLANT REJECTION
     Dosage: 1.4 MG/KG QD IV
     Route: 042
     Dates: start: 20070211, end: 20070211
  2. THYMOGLOBULIN [Suspect]
     Indication: KIDNEY TRANSPLANT REJECTION
     Dosage: 1.4 MG/KG QD IV
     Route: 042
     Dates: start: 20070213, end: 20070214
  3. THYMOGLOBULIN [Suspect]
     Indication: KIDNEY TRANSPLANT REJECTION
     Dosage: 1.4 MG/KG QD IV
     Route: 042
     Dates: start: 20070219, end: 20070220
  4. PROGRAF [Concomitant]
  5. CELLCEPT [Concomitant]
  6. NORVASC [Concomitant]

REACTIONS (1)
  - SERUM SICKNESS [None]
